FAERS Safety Report 12931118 (Version 2)
Quarter: 2017Q1

REPORT INFORMATION
  Report Type: Spontaneous
  Country: US (occurrence: US)
  Receive Date: 20161110
  Receipt Date: 20170329
  Transmission Date: 20170428
  Serious: No
  Sender: FDA-Public Use
  Company Number: US-JAZZ-2016-US-017841

PATIENT
  Sex: Female

DRUGS (49)
  1. XYREM [Suspect]
     Active Substance: SODIUM OXYBATE
     Indication: NARCOLEPSY
     Dosage: 2.25 G, BID
     Route: 048
     Dates: start: 201511, end: 201511
  2. GLUCOSAMINE CHONDROITIN [Concomitant]
     Active Substance: CHONDROITIN SULFATE (BOVINE)\GLUCOSAMINE HYDROCHLORIDE
  3. PATANASE [Concomitant]
     Active Substance: OLOPATADINE HYDROCHLORIDE
  4. VITAMIN B COMPLEX [Concomitant]
     Active Substance: CYANOCOBALAMIN\DEXPANTHENOL\NIACINAMIDE\PYRIDOXINE HYDROCHLORIDE\RIBOFLAVIN 5^-PHOSPHATE SODIUM\THIAMINE HYDROCHLORIDE\VITAMIN B COMPLEX
  5. ADDERALL [Concomitant]
     Active Substance: AMPHETAMINE ASPARTATE\AMPHETAMINE SULFATE\DEXTROAMPHETAMINE SACCHARATE\DEXTROAMPHETAMINE SULFATE
  6. ALLEGRA ALLERGY [Concomitant]
     Active Substance: FEXOFENADINE HYDROCHLORIDE
  7. LOSARTAN POTASSIUM. [Concomitant]
     Active Substance: LOSARTAN POTASSIUM
  8. FISH OIL [Concomitant]
     Active Substance: FISH OIL
  9. NASACORT [Concomitant]
     Active Substance: TRIAMCINOLONE ACETONIDE
  10. MAGNESIUM OXIDE. [Concomitant]
     Active Substance: MAGNESIUM OXIDE
  11. ZINC GLUCONATE [Concomitant]
     Active Substance: ZINC GLUCONATE
  12. COLLAGEN HYDROLYSATE [Concomitant]
  13. PROBIOTIC COMPLEX [Concomitant]
  14. CALCIUM ANTACID [Concomitant]
     Active Substance: CALCIUM CARBONATE
  15. SOMA [Concomitant]
     Active Substance: CARISOPRODOL
  16. TEA [Concomitant]
     Active Substance: TEA LEAF
  17. IBUPROFEN. [Concomitant]
     Active Substance: IBUPROFEN
  18. CALCIUM CITRATE + D [Concomitant]
  19. STRATTERA [Concomitant]
     Active Substance: ATOMOXETINE HYDROCHLORIDE
  20. TIZANIDINE HCL [Concomitant]
     Active Substance: TIZANIDINE HYDROCHLORIDE
  21. ZYRTEC [Concomitant]
     Active Substance: CETIRIZINE HYDROCHLORIDE
  22. CHLORELLA [Concomitant]
  23. CHROMIUM PICOLINATE [Concomitant]
     Active Substance: CHROMIUM PICOLINATE
  24. MULTIVITAMIN [Concomitant]
     Active Substance: VITAMINS
  25. VITAMIN C [Concomitant]
     Active Substance: ASCORBIC ACID
  26. YEAST [Concomitant]
     Active Substance: YEAST
  27. NORCO [Concomitant]
     Active Substance: ACETAMINOPHEN\HYDROCODONE BITARTRATE
  28. XYREM [Suspect]
     Active Substance: SODIUM OXYBATE
     Dosage: DOSE ADJUSTMENSTS
     Route: 048
     Dates: start: 201511, end: 201511
  29. ALPRAZOLAM. [Concomitant]
     Active Substance: ALPRAZOLAM
  30. BENADRYL ALLERGY [Concomitant]
     Active Substance: DIPHENHYDRAMINE HYDROCHLORIDE
  31. BIOTIN [Concomitant]
     Active Substance: BIOTIN
  32. MACROBID [Concomitant]
     Active Substance: NITROFURANTOIN\NITROFURANTOIN MONOHYDRATE
  33. SUDAFED PE CONGESTION [Concomitant]
     Active Substance: PHENYLEPHRINE HYDROCHLORIDE
  34. REQUIP [Concomitant]
     Active Substance: ROPINIROLE HYDROCHLORIDE
  35. CURCUMIN [Concomitant]
     Active Substance: CURCUMIN
  36. GUAIFENESIN. [Concomitant]
     Active Substance: GUAIFENESIN
  37. AMBIEN [Concomitant]
     Active Substance: ZOLPIDEM TARTRATE
  38. VALTREX [Concomitant]
     Active Substance: VALACYCLOVIR HYDROCHLORIDE
  39. ALBUTEROL SULFATE. [Concomitant]
     Active Substance: ALBUTEROL SULFATE
  40. EPIPEN [Concomitant]
     Active Substance: EPINEPHRINE
  41. FOLIC ACID. [Concomitant]
     Active Substance: FOLIC ACID
  42. L-ARGININE [Concomitant]
     Active Substance: ARGININE
  43. PYRIDOXINE [Concomitant]
     Active Substance: PYRIDOXINE
  44. VITAMIN B12 [Concomitant]
     Active Substance: CYANOCOBALAMIN
  45. XYREM [Suspect]
     Active Substance: SODIUM OXYBATE
     Dosage: 4.5 G, BID
     Route: 048
     Dates: start: 201511
  46. VITAMIN D3 [Concomitant]
     Active Substance: CHOLECALCIFEROL
  47. KELP [Concomitant]
     Active Substance: KELP
  48. PREMPRO [Concomitant]
     Active Substance: ESTROGENS, CONJUGATED\MEDROXYPROGESTERONE ACETATE
  49. SIMETHICONE (DIMETHICONE) [Concomitant]
     Active Substance: DIMETHICONE

REACTIONS (4)
  - Alopecia [Recovered/Resolved]
  - Hypersensitivity [Not Recovered/Not Resolved]
  - Anxiety [Recovering/Resolving]
  - Stress [Not Recovered/Not Resolved]
